FAERS Safety Report 16534515 (Version 2)
Quarter: 2019Q3

REPORT INFORMATION
  Report Type: Spontaneous
  Country: PK (occurrence: PK)
  Receive Date: 20190705
  Receipt Date: 20190712
  Transmission Date: 20191004
  Serious: Yes (Other)
  Sender: FDA-Public Use
  Company Number: PHHY2019PK154911

PATIENT
  Age: 54 Year
  Sex: Female
  Weight: 80 kg

DRUGS (5)
  1. THYRONORM [Concomitant]
     Active Substance: LEVOTHYROXINE
     Indication: THYROID HORMONE REPLACEMENT THERAPY
     Dosage: 25 UG, QD
     Route: 048
  2. PIOZER G [Concomitant]
     Indication: DIABETES MELLITUS
     Dosage: 34 MG, QD (30/4) MG
     Route: 048
  3. COSENTYX [Suspect]
     Active Substance: SECUKINUMAB
     Indication: PSORIASIS
     Dosage: 2 DF, QW
     Route: 058
     Dates: start: 20190626
  4. MIXTARD HM [Concomitant]
     Indication: DIABETES MELLITUS
     Dosage: 100 IU/ML, QD
     Route: 058
  5. REVITAL [Concomitant]
     Indication: VITAMIN SUPPLEMENTATION
     Dosage: UNK, QD
     Route: 048

REACTIONS (5)
  - Urticaria [Unknown]
  - Pruritus [Not Recovered/Not Resolved]
  - Rash [Unknown]
  - Skin haemorrhage [Not Recovered/Not Resolved]
  - Peripheral swelling [Unknown]

NARRATIVE: CASE EVENT DATE: 20190626
